FAERS Safety Report 7720375-5 (Version None)
Quarter: 2011Q3

REPORT INFORMATION
  Report Type: 
  Country: None (occurrence: None)
  Receive Date: 20110831
  Receipt Date: 20110825
  Transmission Date: 20111222
  Serious: Yes (Disabling)
  Sender: FDA-Public Use
  Company Number: BR-ABBOTT-11P-020-0849565-00

PATIENT
  Sex: Female
  Weight: 58 kg

DRUGS (8)
  1. NEXIUM [Concomitant]
     Indication: GASTRIC DISORDER
     Route: 048
  2. PYRIDOXINE HCL [Concomitant]
     Indication: LABYRINTHITIS
  3. PREDNISONE [Concomitant]
     Indication: GASTROINTESTINAL INFLAMMATION
  4. PREDNISONE [Concomitant]
     Indication: VASCULITIS
     Route: 048
  5. PYRIDOXINE HCL [Concomitant]
     Indication: HEARING IMPAIRED
     Route: 048
  6. HUMIRA [Suspect]
     Indication: CROHN'S DISEASE
     Route: 058
     Dates: start: 20101026
  7. BETAHISTINE DIHYDROCHLORIDE [Concomitant]
     Indication: LABYRINTHITIS
     Route: 048
  8. NEXIUM [Concomitant]
     Indication: PROPHYLAXIS

REACTIONS (9)
  - ARTHRALGIA [None]
  - MUSCULOSKELETAL CHEST PAIN [None]
  - DEAFNESS [None]
  - GASTROINTESTINAL OEDEMA [None]
  - MUSCULOSKELETAL STIFFNESS [None]
  - INAPPROPRIATE SCHEDULE OF DRUG ADMINISTRATION [None]
  - GASTROINTESTINAL INFLAMMATION [None]
  - CONSTIPATION [None]
  - GASTROINTESTINAL HAEMORRHAGE [None]
